FAERS Safety Report 5964269-4 (Version None)
Quarter: 2008Q4

REPORT INFORMATION
  Report Type: 
  Country: None (occurrence: None)
  Receive Date: 20081124
  Receipt Date: 20081112
  Transmission Date: 20090506
  Serious: Yes (Hospitalization)
  Sender: FDA-Public Use
  Company Number: GB-GILEAD-2008-0018971

PATIENT
  Age: 34 Year
  Sex: Male

DRUGS (2)
  1. TRUVADA [Suspect]
     Indication: HIV INFECTION
     Dates: start: 20080722
  2. REYATAZ [Suspect]
     Indication: HIV INFECTION
     Dates: start: 20080722

REACTIONS (2)
  - CONSTIPATION [None]
  - JAUNDICE [None]
